FAERS Safety Report 20540226 (Version 1)
Quarter: 2022Q1

REPORT INFORMATION
  Report Type: Report from Study
  Country: IN (occurrence: IN)
  Receive Date: 20220302
  Receipt Date: 20220302
  Transmission Date: 20220423
  Serious: Yes (Other)
  Sender: FDA-Public Use
  Company Number: IN-JNJFOC-20211152771

PATIENT
  Age: 20 Year
  Sex: Female
  Weight: 35 kg

DRUGS (1)
  1. REMICADE [Suspect]
     Active Substance: INFLIXIMAB
     Indication: Product used for unknown indication
     Route: 042
     Dates: end: 20200811

REACTIONS (2)
  - Weight decreased [Not Recovered/Not Resolved]
  - Drug ineffective [Unknown]
